FAERS Safety Report 8614870-4 (Version None)
Quarter: 2012Q3

REPORT INFORMATION
  Report Type: 
  Country: None (occurrence: None)
  Receive Date: 20120823
  Receipt Date: 20120725
  Transmission Date: 20120928
  Serious: No
  Sender: FDA-Public Use
  Company Number: US-BRISTOL-MYERS SQUIBB COMPANY-16666711

PATIENT
  Age: 27 Year
  Sex: Male
  Weight: 91 kg

DRUGS (1)
  1. KOMBIGLYZE XR [Suspect]
     Indication: DIABETES MELLITUS
     Dosage: 1DF:5MG/1000MG
     Route: 048
     Dates: start: 20120101, end: 20120201

REACTIONS (2)
  - RASH [None]
  - URTICARIA [None]
